FAERS Safety Report 7178035-8 (Version None)
Quarter: 2010Q4

REPORT INFORMATION
  Report Type: 
  Country: None (occurrence: None)
  Receive Date: 20101208
  Receipt Date: 20101126
  Transmission Date: 20110411
  Serious: Yes (Hospitalization)
  Sender: FDA-Public Use
  Company Number: 020000

PATIENT
  Sex: Female

DRUGS (7)
  1. CERTOLIZUMAB PEGOL (CERTOLIZUMAB PEGOL) [Suspect]
     Indication: RHEUMATOID ARTHRITIS
     Dosage: (200 MG 1X/2 WEEKS SUBCUTANEOUS)
     Route: 058
     Dates: start: 20100427
  2. CERTOLIZUMAB PEGOL (CERTOLIZUMAB PEGOL) [Suspect]
     Indication: RHEUMATOID ARTHRITIS
     Dosage: (200 MG 1X/2 WEEKS SUBCUTANEOUS)
     Route: 058
     Dates: start: 20101012
  3. LOXOPROFEN SODIUM [Concomitant]
  4. MECOBALAMIN [Concomitant]
  5. HYALURONATE SODIUM [Concomitant]
  6. CYANOCOBALAMIN [Concomitant]
  7. DICLOFENAC SODIUM [Concomitant]

REACTIONS (1)
  - HERPES ZOSTER [None]
